FAERS Safety Report 17316195 (Version 1)
Quarter: 2020Q1

REPORT INFORMATION
  Report Type: Spontaneous
  Country: US (occurrence: US)
  Receive Date: 20200124
  Receipt Date: 20200124
  Transmission Date: 20200409
  Serious: No
  Sender: FDA-Public Use
  Company Number: US-SUNOVION-2020SUN000214

PATIENT
  Sex: Female

DRUGS (1)
  1. BROVANA [Suspect]
     Active Substance: ARFORMOTEROL TARTRATE
     Dosage: 1 VIAL, BID
     Route: 055

REACTIONS (4)
  - Oropharyngeal discomfort [Unknown]
  - Sinus congestion [Unknown]
  - Productive cough [Unknown]
  - Respiratory tract congestion [Unknown]
